FAERS Safety Report 10575007 (Version 3)
Quarter: 2014Q4

REPORT INFORMATION
  Report Type: Spontaneous
  Country: BR (occurrence: BR)
  Receive Date: 20141111
  Receipt Date: 20141231
  Transmission Date: 20150529
  Serious: Yes (Other)
  Sender: FDA-Public Use
  Company Number: BR-AMGEN-BRASP2014083470

PATIENT
  Age: 66 Year
  Sex: Male
  Weight: 74 kg

DRUGS (2)
  1. ENBREL [Suspect]
     Active Substance: ETANERCEPT
     Dosage: 50 MG, WEEKLY
     Route: 058
     Dates: start: 201410, end: 201411
  2. ENBREL [Suspect]
     Active Substance: ETANERCEPT
     Indication: RHEUMATOID ARTHRITIS
     Dosage: 50 MG, ONCE WEEKLY
     Route: 058
     Dates: start: 20050825, end: 2014

REACTIONS (3)
  - Pain [Unknown]
  - Seizure [Unknown]
  - Memory impairment [Unknown]

NARRATIVE: CASE EVENT DATE: 2014
